FAERS Safety Report 17581603 (Version 3)
Quarter: 2021Q2

REPORT INFORMATION
  Report Type: Spontaneous
  Country: US (occurrence: US)
  Receive Date: 20200325
  Receipt Date: 20210412
  Transmission Date: 20210716
  Serious: Yes (Hospitalization, Other)
  Sender: FDA-Public Use
  Company Number: US-GILEAD-2020-0456153

PATIENT
  Sex: Female
  Weight: 64 kg

DRUGS (18)
  1. AMLODIPINE [Concomitant]
     Active Substance: AMLODIPINE BESYLATE
  2. ATORVASTATIN [Concomitant]
     Active Substance: ATORVASTATIN
  3. BABY ASPIRIN [Concomitant]
     Active Substance: ASPIRIN
  4. MECLIZINE [MECLOZINE HYDROCHLORIDE] [Concomitant]
     Active Substance: MECLIZINE HYDROCHLORIDE
  5. NOVOLOG [Concomitant]
     Active Substance: INSULIN ASPART
  6. SULFASALAZINE. [Concomitant]
     Active Substance: SULFASALAZINE
  7. HYDROXYCHLOROQUINE [Concomitant]
     Active Substance: HYDROXYCHLOROQUINE
  8. ENTECAVIR. [Concomitant]
     Active Substance: ENTECAVIR
  9. LANTUS [Concomitant]
     Active Substance: INSULIN GLARGINE
  10. TRUVADA [Suspect]
     Active Substance: EMTRICITABINE\TENOFOVIR DISOPROXIL FUMARATE
     Indication: HEPATITIS B
     Dosage: UNK
     Route: 048
     Dates: start: 2009
  11. SCOPOLAMINE AMINOXIDE [Concomitant]
     Active Substance: SCOPOLAMINE N-OXIDE
  12. IRBESARTAN. [Concomitant]
     Active Substance: IRBESARTAN
  13. ALPRAZOLAM. [Concomitant]
     Active Substance: ALPRAZOLAM
  14. TRUVADA [Suspect]
     Active Substance: EMTRICITABINE\TENOFOVIR DISOPROXIL FUMARATE
     Dosage: UNK
     Route: 048
     Dates: start: 200909, end: 20151209
  15. TORSEMIDE. [Concomitant]
     Active Substance: TORSEMIDE
  16. METOPROLOL. [Concomitant]
     Active Substance: METOPROLOL
  17. PREDNISONE. [Concomitant]
     Active Substance: PREDNISONE
  18. ZOFRAN [Concomitant]
     Active Substance: ONDANSETRON HYDROCHLORIDE

REACTIONS (13)
  - Acute kidney injury [Not Recovered/Not Resolved]
  - Bone density decreased [Not Recovered/Not Resolved]
  - Pain [Not Recovered/Not Resolved]
  - Anhedonia [Not Recovered/Not Resolved]
  - Depression [Not Recovered/Not Resolved]
  - Chronic kidney disease [Not Recovered/Not Resolved]
  - Emotional distress [Not Recovered/Not Resolved]
  - Anxiety [Not Recovered/Not Resolved]
  - Osteopenia [Not Recovered/Not Resolved]
  - Fanconi syndrome acquired [Not Recovered/Not Resolved]
  - Osteomalacia [Not Recovered/Not Resolved]
  - Economic problem [Not Recovered/Not Resolved]
  - Loss of personal independence in daily activities [Not Recovered/Not Resolved]

NARRATIVE: CASE EVENT DATE: 2014
